FAERS Safety Report 5777306-7 (Version None)
Quarter: 2008Q2

REPORT INFORMATION
  Report Type: 
  Country: None (occurrence: None)
  Receive Date: 20080618
  Receipt Date: 20080605
  Transmission Date: 20081010
  Serious: Yes (Hospitalization)
  Sender: FDA-Public Use
  Company Number: PHRM2008FR01375

PATIENT
  Sex: Male

DRUGS (5)
  1. ZOMETA [Suspect]
     Dosage: 4 MG, QMO
     Route: 042
     Dates: start: 20071001
  2. ZOMETA [Suspect]
     Dosage: 3 MG, QMO
     Dates: start: 20070601, end: 20071201
  3. CORTANCYL [Suspect]
     Indication: BRAIN COMPRESSION
     Dosage: 40 MG, QD
     Dates: start: 20070701
  4. CORTANCYL [Suspect]
     Dosage: 30 MG, QD
     Dates: end: 20071201
  5. SUTENT [Concomitant]
     Indication: RENAL CANCER METASTATIC
     Dosage: 37.5 MG, QD
     Dates: start: 20070801, end: 20080101

REACTIONS (2)
  - DENTAL CARE [None]
  - OSTEONECROSIS [None]
